FAERS Safety Report 6262132-5 (Version None)
Quarter: 2009Q3

REPORT INFORMATION
  Report Type: 
  Country: None (occurrence: None)
  Receive Date: 20090709
  Receipt Date: 20090707
  Transmission Date: 20100115
  Serious: Yes (Other)
  Sender: FDA-Public Use
  Company Number: US-JNJFOC-20090605652

PATIENT
  Sex: Female

DRUGS (14)
  1. TOPAMAX [Suspect]
     Route: 048
  2. TOPAMAX [Suspect]
     Indication: MIGRAINE
     Dosage: 400 MG TOTAL
     Route: 048
  3. FLEXERIL [Concomitant]
     Indication: MUSCLE SPASMS
     Route: 048
  4. SYNTHROID [Concomitant]
     Route: 048
  5. SYNTHROID [Concomitant]
     Indication: HYPOTHYROIDISM
     Route: 048
  6. DESYREL [Concomitant]
     Indication: SLEEP DISORDER
     Route: 048
  7. AMBIEN [Concomitant]
     Route: 048
  8. PROZAC [Concomitant]
     Indication: AFFECTIVE DISORDER
     Route: 048
  9. NEXIUM [Concomitant]
     Indication: GASTROOESOPHAGEAL REFLUX DISEASE
     Route: 048
  10. LIPITOR [Concomitant]
     Indication: HYPERLIPIDAEMIA
     Route: 048
  11. ASPIRIN [Concomitant]
     Indication: HYPERTENSION
     Route: 065
  12. FOLIC ACID [Concomitant]
     Indication: ASTHENIA
     Route: 065
  13. VITAMIN B COMPLEX CAP [Concomitant]
     Indication: ASTHENIA
     Route: 065
  14. PHOSPHATIDYLSERINE [Concomitant]
     Indication: ASTHENIA
     Route: 065

REACTIONS (2)
  - CRYSTAL URINE PRESENT [None]
  - NEPHROLITHIASIS [None]
